FAERS Safety Report 21188939 (Version 1)
Quarter: 2022Q3

REPORT INFORMATION
  Report Type: Report from Study
  Country: BR (occurrence: BR)
  Receive Date: 20220809
  Receipt Date: 20220809
  Transmission Date: 20221027
  Serious: Yes (Other)
  Sender: FDA-Public Use
  Company Number: BR-TAKEDA-2022TUS052672

PATIENT
  Age: 34 Year

DRUGS (1)
  1. ANTI-INHIBITOR COAGULANT COMPLEX [Suspect]
     Active Substance: ANTI-INHIBITOR COAGULANT COMPLEX
     Indication: Haemophilia
     Dosage: 75 MILLIGRAM/KILOGRAM, 3/WEEK
     Route: 065

REACTIONS (2)
  - Therapy non-responder [Unknown]
  - Product dose omission in error [Unknown]
